FAERS Safety Report 4472164-5 (Version None)
Quarter: 2004Q4

REPORT INFORMATION
  Report Type: 
  Country: None (occurrence: None)
  Receive Date: 20041012
  Receipt Date: 20030806
  Transmission Date: 20050328
  Serious: Yes (Hospitalization, Disabling)
  Sender: FDA-Public Use
  Company Number: US-MERCK-0308USA00752

PATIENT
  Age: 39 Year
  Sex: Male
  Weight: 77 kg

DRUGS (12)
  1. XANAX [Concomitant]
     Route: 065
  2. ASPIRIN [Concomitant]
     Route: 065
     Dates: start: 20010801
  3. LIPITOR [Concomitant]
     Route: 065
  4. WELLBUTRIN [Concomitant]
     Route: 065
  5. CELEBREX [Concomitant]
     Indication: JOINT INJURY
     Route: 065
     Dates: start: 20010805, end: 20010808
  6. PLAVIX [Concomitant]
     Route: 065
  7. FOLIC ACID [Concomitant]
     Route: 065
  8. TOPROL-XL [Concomitant]
     Route: 065
  9. LOPRESSOR [Concomitant]
     Route: 065
  10. PYRIDOXINE [Concomitant]
     Route: 065
  11. VIOXX [Suspect]
     Indication: JOINT INJURY
     Route: 048
     Dates: start: 20020105, end: 20020108
  12. VIOXX [Suspect]
     Indication: OSTEOARTHRITIS
     Route: 048
     Dates: start: 20020105, end: 20020108

REACTIONS (7)
  - ADVERSE DRUG REACTION [None]
  - CORONARY ARTERY ATHEROSCLEROSIS [None]
  - HAEMATOMA [None]
  - MITRAL VALVE INCOMPETENCE [None]
  - MYOCARDIAL INFARCTION [None]
  - PANIC DISORDER [None]
  - TRICUSPID VALVE INCOMPETENCE [None]
